FAERS Safety Report 7078754-8 (Version None)
Quarter: 2010Q4

REPORT INFORMATION
  Report Type: 
  Country: None (occurrence: None)
  Receive Date: 20101102
  Receipt Date: 20101026
  Transmission Date: 20110411
  Serious: Yes (Other)
  Sender: FDA-Public Use
  Company Number: JP-PFIZER INC-2010123921

PATIENT
  Age: 92 Year
  Sex: Female

DRUGS (5)
  1. AROMASIN [Suspect]
     Indication: BREAST CANCER METASTATIC
     Dosage: 25 MG, 1X/DAY
     Route: 048
     Dates: start: 20100803, end: 20100908
  2. FERROUS CITRATE [Concomitant]
     Dosage: 50 MG, 2 TABLETS
     Route: 048
  3. CARNACULIN [Concomitant]
     Dosage: 50 MG, 2 TABLETS
     Route: 048
  4. PRAVASTATIN [Concomitant]
     Dosage: 10 MG, 2 TABLETS
     Route: 048
  5. MOZUN [Concomitant]

REACTIONS (1)
  - HEPATIC FUNCTION ABNORMAL [None]
